FAERS Safety Report 7454986-1 (Version None)
Quarter: 2011Q2

REPORT INFORMATION
  Report Type: 
  Country: None (occurrence: None)
  Receive Date: 20110503
  Receipt Date: 20110422
  Transmission Date: 20111010
  Serious: Yes (Hospitalization)
  Sender: FDA-Public Use
  Company Number: US-NOVOPROD-327075

PATIENT
  Sex: Male
  Weight: 77.098 kg

DRUGS (1)
  1. NOVOLIN 70/30 [Suspect]
     Indication: TYPE 2 DIABETES MELLITUS
     Dosage: 30-35 U DAILY
     Route: 058
     Dates: start: 20060101

REACTIONS (1)
  - DYSPNOEA [None]
